FAERS Safety Report 24868159 (Version 1)
Quarter: 2025Q1

REPORT INFORMATION
  Report Type: Spontaneous
  Country: IN (occurrence: None)
  Receive Date: 20250119
  Receipt Date: 20250119
  Transmission Date: 20250409
  Serious: Yes (Hospitalization, Disabling)
  Sender: FDA-CTU
  Company Number: None

PATIENT
  Age: 38 Year
  Sex: Male
  Weight: 73 kg

DRUGS (9)
  1. FLUVOXAMINE [Suspect]
     Active Substance: FLUVOXAMINE
     Indication: Obsessive-compulsive disorder
     Dosage: 1 TABLET TWICE A DAY ORAL
     Route: 048
  2. FLUVOXAMINE [Suspect]
     Active Substance: FLUVOXAMINE
     Indication: Anxiety
  3. ESCITALOPRAM [Suspect]
     Active Substance: ESCITALOPRAM OXALATE
  4. FLUVOXAMINE [Concomitant]
     Active Substance: FLUVOXAMINE
  5. AMISULPRIDE [Concomitant]
     Active Substance: AMISULPRIDE
  6. DIAZEPAM [Concomitant]
     Active Substance: DIAZEPAM
  7. PREGABALIN [Concomitant]
     Active Substance: PREGABALIN
  8. Neurobion forte renerve plus [Concomitant]
  9. MAGNESIUM GLYCINATE [Concomitant]
     Active Substance: MAGNESIUM GLYCINATE

REACTIONS (1)
  - Sexual dysfunction [None]

NARRATIVE: CASE EVENT DATE: 20230120
